FAERS Safety Report 7277489-6 (Version None)
Quarter: 2011Q1

REPORT INFORMATION
  Report Type: 
  Country: None (occurrence: None)
  Receive Date: 20110207
  Receipt Date: 20110124
  Transmission Date: 20110831
  Serious: Yes (Hospitalization, Other)
  Sender: FDA-Public Use
  Company Number: US-ELI_LILLY_AND_COMPANY-US201012002539

PATIENT
  Sex: Female
  Weight: 70.748 kg

DRUGS (10)
  1. SINGULAIR [Concomitant]
     Dosage: UNK, UNKNOWN
     Route: 065
  2. FORTEO [Suspect]
     Indication: OSTEOPOROSIS
     Dosage: 20 UG, DAILY (1/D)
     Route: 058
     Dates: start: 20101101, end: 20101206
  3. NEXIUM [Concomitant]
  4. KLONOPIN [Concomitant]
     Dosage: UNK, UNKNOWN
     Route: 065
  5. EFFEXOR [Concomitant]
     Dosage: UNK, UNKNOWN
     Route: 065
  6. FORTEO [Suspect]
     Dosage: 20 UG, DAILY (1/D)
  7. SIMVASTATIN [Concomitant]
  8. ERGOCALCIFEROL [Concomitant]
     Dosage: UNK, UNKNOWN
     Route: 065
  9. HYDROCHLOROTHIAZIDE [Concomitant]
  10. LISINOPRIL [Concomitant]

REACTIONS (7)
  - CHEMICAL INJURY [None]
  - DEHYDRATION [None]
  - BLOOD POTASSIUM DECREASED [None]
  - DRUG DOSE OMISSION [None]
  - FALL [None]
  - BLOOD SODIUM DECREASED [None]
  - PRESYNCOPE [None]
